FAERS Safety Report 12694643 (Version 2)
Quarter: 2016Q3

REPORT INFORMATION
  Report Type: Spontaneous
  Country: US (occurrence: US)
  Receive Date: 20160829
  Receipt Date: 20160927
  Transmission Date: 20161109
  Serious: Yes (Other)
  Sender: FDA-Public Use
  Company Number: US-JNJFOC-20160820063

PATIENT
  Sex: Male

DRUGS (1)
  1. INVOKANA [Suspect]
     Active Substance: CANAGLIFLOZIN
     Indication: PRODUCT USED FOR UNKNOWN INDICATION
     Route: 048

REACTIONS (12)
  - Palpitations [Unknown]
  - Abdominal pain upper [Unknown]
  - Arthralgia [Unknown]
  - Dry mouth [Unknown]
  - Urticaria [Unknown]
  - Blood glucose decreased [Unknown]
  - Respiratory disorder [Unknown]
  - Renal injury [Unknown]
  - Dizziness [Unknown]
  - Pollakiuria [Unknown]
  - Ketoacidosis [Unknown]
  - Asthenia [Unknown]
